FAERS Safety Report 8849189 (Version 1)
Quarter: 2012Q4

REPORT INFORMATION
  Report Type: Spontaneous
  Country: US (occurrence: None)
  Receive Date: 20121019
  Receipt Date: 20121019
  Transmission Date: 20130627
  Serious: Yes (Life-Threatening)
  Sender: FDA-Public Use
  Company Number: None

PATIENT
  Sex: Female
  Weight: 80 kg

DRUGS (1)
  1. CARDIOPLEGIA SOLUTION [Suspect]

REACTIONS (2)
  - Product contamination microbial [None]
  - Mycotic aneurysm [None]
